FAERS Safety Report 8932275 (Version 1)
Quarter: 2012Q4

REPORT INFORMATION
  Report Type: 
  Country: DE (occurrence: DE)
  Receive Date: 20121128
  Receipt Date: 20121128
  Transmission Date: 20130627
  Serious: Yes (Hospitalization, Other)
  Sender: FDA-Public Use
  Company Number: DE-PFIZER INC-2012295755

PATIENT
  Age: 45 Year
  Sex: Female

DRUGS (14)
  1. LYRICA [Suspect]
     Dosage: 600 mg, UNK
     Route: 048
  2. TREVILOR RETARD [Suspect]
     Dosage: 150 mg, UNK
     Route: 048
     Dates: start: 20120301, end: 20120413
  3. TREVILOR RETARD [Suspect]
     Dosage: 225 mg, UNK
     Route: 048
     Dates: start: 20120414
  4. STANGYL [Suspect]
     Dosage: 100 mg, UNK
     Route: 048
  5. DOMINAL (PROTHIPENDYL HYDROCHLORIDE) [Suspect]
     Dosage: 160 mg, UNK
     Route: 048
     Dates: end: 20120408
  6. DOMINAL (PROTHIPENDYL HYDROCHLORIDE) [Suspect]
     Dosage: 200 mg, UNK
     Route: 048
     Dates: start: 20120409
  7. TRUXAL [Suspect]
     Dosage: 400  mg, UNK
     Route: 048
     Dates: start: 20120425, end: 20120508
  8. SEROQUEL [Suspect]
     Dosage: 200 mg, UNK
     Route: 048
     Dates: start: 20120503, end: 20120508
  9. QUILONUM - SLOW RELEASE [Concomitant]
     Dosage: 900 mg, UNK
     Route: 048
  10. METFORMIN HYDROCHLORIDE [Concomitant]
     Dosage: 425 mg, UNK
     Route: 048
  11. EUTHYROX [Concomitant]
     Dosage: 88 ug, UNK
     Route: 048
  12. FLUANXOL DEPOT [Concomitant]
     Dosage: 20 mg, UNK
     Route: 030
     Dates: end: 20120424
  13. INSULIN DETEMIR [Concomitant]
     Dosage: after scheme
  14. MOVICOL [Concomitant]
     Dosage: 3 UNK, UNK
     Dates: start: 20120507

REACTIONS (7)
  - Transaminases increased [Recovering/Resolving]
  - Alanine aminotransferase increased [Recovering/Resolving]
  - Aspartate aminotransferase increased [Recovering/Resolving]
  - Blood alkaline phosphatase increased [Recovering/Resolving]
  - Gamma-glutamyltransferase increased [Recovering/Resolving]
  - Lipase increased [Recovering/Resolving]
  - Blood bilirubin increased [Unknown]
